FAERS Safety Report 9867596 (Version 1)
Quarter: 2014Q1

REPORT INFORMATION
  Report Type: Report from Study
  Country: FR (occurrence: FR)
  Receive Date: 20140204
  Receipt Date: 20140204
  Transmission Date: 20141002
  Serious: Yes (Death)
  Sender: FDA-Public Use
  Company Number: FR-SANOFI-AVENTIS-200810263EU

PATIENT
  Age: 57 Year
  Sex: Female

DRUGS (17)
  1. TERIFLUNOMIDE [Suspect]
     Indication: MULTIPLE SCLEROSIS
     Route: 048
     Dates: start: 20030313
  2. LEXOMIL [Suspect]
     Indication: ANXIETY
     Dates: start: 1999
  3. LEVOTHYROX [Suspect]
     Indication: AUTOIMMUNE THYROIDITIS
     Dates: start: 20061027
  4. DEROXAT [Suspect]
     Indication: PRODUCT USED FOR UNKNOWN INDICATION
     Dates: end: 20071226
  5. ZYRTEC [Suspect]
     Indication: PRODUCT USED FOR UNKNOWN INDICATION
  6. AVLOCARDYL [Suspect]
     Indication: TACHYCARDIA
     Dates: start: 20051120, end: 20071226
  7. ESTRADIOL [Concomitant]
     Indication: POSTMENOPAUSE
     Route: 061
     Dates: start: 20070211, end: 20070420
  8. SEREVENT [Concomitant]
     Indication: DYSPNOEA
     Dates: start: 20050316
  9. VENTOLINE [Concomitant]
     Indication: DYSPNOEA
     Dates: start: 20050301
  10. VALACICLOVIR [Concomitant]
     Indication: HERPES ZOSTER
     Dates: start: 20070313, end: 20070327
  11. ACYCLOVIR [Concomitant]
     Indication: HERPES ZOSTER
     Dates: start: 20070313, end: 20070327
  12. PARACETAMOL [Concomitant]
     Dates: start: 20070313, end: 20070801
  13. TRIDESONIT [Concomitant]
     Indication: HERPES ZOSTER
     Dates: start: 20070409, end: 20070416
  14. TELFAST [Concomitant]
     Dates: start: 20070515, end: 20070615
  15. ESTREVA [Concomitant]
     Indication: MENOPAUSAL SYMPTOMS
     Dates: start: 200706
  16. MANTADIX [Concomitant]
     Indication: ASTHENIA
     Dosage: DOSE:2 UNIT(S)
     Dates: start: 20071001
  17. DIPROSONE [Concomitant]
     Indication: HERPES ZOSTER
     Route: 061
     Dates: start: 20070402, end: 20070408

REACTIONS (4)
  - Sudden death [Fatal]
  - Anxiety [Fatal]
  - Hypotension [Fatal]
  - Tachycardia [Fatal]
